FAERS Safety Report 5264168-X (Version None)
Quarter: 2007Q1

REPORT INFORMATION
  Report Type: 
  Country: None (occurrence: None)
  Receive Date: 20070313
  Receipt Date: 20050225
  Transmission Date: 20070707
  Serious: Yes (Death, Hospitalization)
  Sender: FDA-Public Use
  Company Number: ZW-BOEHRINGER INGELHEIM PHARMACEUTICALS, INC.-2005-UK-00327UK

PATIENT
  Sex: Female

DRUGS (5)
  1. NEVIRAPINE [Suspect]
     Indication: HIV INFECTION
     Dates: start: 20041008, end: 20050213
  2. DIDANOSINE [Suspect]
     Indication: HIV INFECTION
     Dates: start: 20041008, end: 20050213
  3. STAVUDINE [Suspect]
     Indication: HIV INFECTION
     Dates: start: 20041008, end: 20050213
  4. CARBAMAZEPINE [Concomitant]
     Indication: NEUROPATHY PERIPHERAL
     Dates: end: 20050213
  5. GLIBENCLAMIDE [Concomitant]
     Indication: DIABETES MELLITUS
     Dates: end: 20050213

REACTIONS (1)
  - ACUTE HEPATIC FAILURE [None]
